FAERS Safety Report 6271103-4 (Version None)
Quarter: 2009Q3

REPORT INFORMATION
  Report Type: 
  Country: None (occurrence: None)
  Receive Date: 20090716
  Receipt Date: 20090421
  Transmission Date: 20100115
  Serious: No
  Sender: FDA-Public Use
  Company Number: US-TYCO HEALTHCARE/MALLINCKRODT-T200900907

PATIENT
  Sex: Female
  Weight: 61.224 kg

DRUGS (4)
  1. OXYCODONE HCL AND ACETAMINOPHEN [Suspect]
     Indication: SCIATICA
     Dosage: 1 TAB EVERY 6 HOURS
     Route: 048
     Dates: start: 20090415
  2. INSULIN [Concomitant]
     Indication: DIABETES MELLITUS
     Dosage: SLIDING SCALE
     Route: 058
  3. TYLENOL (CAPLET) [Concomitant]
     Indication: SLEEP DISORDER
     Dosage: 1 TAB, QPM
     Route: 048
  4. RAZEPAM [Concomitant]
     Indication: SLEEP DISORDER
     Dosage: 1, QPM
     Route: 048

REACTIONS (4)
  - DIZZINESS [None]
  - HYPERHIDROSIS [None]
  - PRURITUS [None]
  - VISION BLURRED [None]
